FAERS Safety Report 7272337-2 (Version None)
Quarter: 2011Q1

REPORT INFORMATION
  Report Type: 
  Country: None (occurrence: None)
  Receive Date: 20110203
  Receipt Date: 20110128
  Transmission Date: 20110831
  Serious: Yes (Hospitalization, Other)
  Sender: FDA-Public Use
  Company Number: PHHY2010JP66887

PATIENT
  Sex: Male

DRUGS (10)
  1. AMN107 [Suspect]
     Dosage: 200 MG DAILY
     Dates: start: 20100722
  2. GLEEVEC [Concomitant]
     Dosage: UNK
     Dates: start: 20090403, end: 20091103
  3. CELESTAMINE TAB [Concomitant]
     Indication: RASH
     Dosage: 1 DF
     Route: 048
     Dates: start: 20091215, end: 20100326
  4. AMN107 [Suspect]
     Dosage: 400MG
     Route: 048
     Dates: start: 20100330, end: 20100413
  5. GASTER D [Concomitant]
     Dosage: 10MG
     Route: 048
     Dates: start: 20100622
  6. AMN107 [Suspect]
     Dosage: 400MG
     Route: 048
     Dates: start: 20091110, end: 20091112
  7. AMN107 [Suspect]
     Dosage: 200MG
     Route: 048
     Dates: start: 20100427, end: 20100525
  8. GLEEVEC [Concomitant]
     Indication: CHRONIC MYELOID LEUKAEMIA
     Dosage: 300MG
     Route: 048
     Dates: start: 20091124, end: 20100304
  9. HYDREA [Concomitant]
     Indication: CHRONIC MYELOID LEUKAEMIA
     Dosage: 1 DF
     Route: 048
     Dates: start: 20100608, end: 20100705
  10. MEVALOTIN [Concomitant]
     Indication: HYPERLIPIDAEMIA
     Dosage: 10MG
     Route: 048
     Dates: start: 20100622

REACTIONS (4)
  - CORONARY ARTERY OCCLUSION [None]
  - LIPASE INCREASED [None]
  - VASCULAR GRAFT [None]
  - ANGINA PECTORIS [None]
